FAERS Safety Report 11041987 (Version 2)
Quarter: 2015Q2

REPORT INFORMATION
  Report Type: Spontaneous
  Country: US (occurrence: US)
  Receive Date: 20150416
  Receipt Date: 20150525
  Transmission Date: 20150821
  Serious: Yes (Other)
  Sender: FDA-Public Use
  Company Number: US-JNJFOC-20130618652

PATIENT
  Age: 75 Year
  Sex: Male
  Weight: 77.57 kg

DRUGS (17)
  1. XARELTO [Suspect]
     Active Substance: RIVAROXABAN
     Indication: CEREBROVASCULAR ACCIDENT PROPHYLAXIS
     Route: 048
     Dates: start: 20130618, end: 20130627
  2. ASPIRIN. [Suspect]
     Active Substance: ASPIRIN
     Indication: PRODUCT USED FOR UNKNOWN INDICATION
     Dosage: 1 TABLET
     Route: 048
  3. BRIMONIDINE TARTRATE. [Concomitant]
     Active Substance: BRIMONIDINE TARTRATE
     Dosage: IN BOTH EYES
     Route: 047
     Dates: start: 20070425
  4. XARELTO [Suspect]
     Active Substance: RIVAROXABAN
     Indication: CEREBROVASCULAR ACCIDENT PROPHYLAXIS
     Route: 048
     Dates: start: 20130628
  5. ZOLPIDEM TARTRATE. [Concomitant]
     Active Substance: ZOLPIDEM TARTRATE
     Dosage: AT BEDTIME
     Route: 048
     Dates: start: 20091113
  6. COSOPT [Concomitant]
     Active Substance: DORZOLAMIDE HYDROCHLORIDE\TIMOLOL MALEATE
     Dosage: 1 DROP INTO BOTH EYES
     Route: 047
     Dates: start: 20070425
  7. CEFDINIR. [Concomitant]
     Active Substance: CEFDINIR
     Dosage: 1 CAPSULE
     Route: 048
  8. TIKOSYN [Concomitant]
     Active Substance: DOFETILIDE
     Dosage: 1.5 CAPSULE
     Route: 048
     Dates: start: 20130306
  9. DIGOXIN. [Concomitant]
     Active Substance: DIGOXIN
     Dosage: 1 TABLET
     Route: 048
  10. ATORVASTATIN CALCIUM. [Concomitant]
     Active Substance: ATORVASTATIN CALCIUM
     Dosage: AS DIRECTED
     Route: 048
     Dates: start: 20130507
  11. CARVEDILOL. [Concomitant]
     Active Substance: CARVEDILOL
     Dosage: 1 TABLET
     Route: 048
  12. XALATAN [Concomitant]
     Active Substance: LATANOPROST
     Route: 047
     Dates: start: 20100712
  13. XARELTO [Suspect]
     Active Substance: RIVAROXABAN
     Indication: ATRIAL FIBRILLATION
     Route: 048
     Dates: start: 20130618, end: 20130627
  14. PLAVIX [Suspect]
     Active Substance: CLOPIDOGREL BISULFATE
     Indication: STENT PLACEMENT
     Dosage: STENT PLACED IN MAR??1 TABLET DAILY
     Route: 048
  15. TIKOSYN [Concomitant]
     Active Substance: DOFETILIDE
     Route: 048
     Dates: start: 20130306
  16. CEPHALEXIN. [Concomitant]
     Active Substance: CEPHALEXIN
     Route: 048
  17. XARELTO [Suspect]
     Active Substance: RIVAROXABAN
     Indication: ATRIAL FIBRILLATION
     Route: 048
     Dates: start: 20130628

REACTIONS (3)
  - Epistaxis [Unknown]
  - Inappropriate schedule of drug administration [Unknown]
  - Haematuria [Recovering/Resolving]

NARRATIVE: CASE EVENT DATE: 20130626
